FAERS Safety Report 5634474-5 (Version None)
Quarter: 2008Q1

REPORT INFORMATION
  Report Type: 
  Country: None (occurrence: None)
  Receive Date: 20080220
  Receipt Date: 20080220
  Transmission Date: 20080703
  Serious: Yes (Hospitalization)
  Sender: FDA-Public Use
  Company Number: None

PATIENT
  Sex: Female
  Weight: 47 kg

DRUGS (6)
  1. XELODA [Suspect]
     Indication: COLON CANCER METASTATIC
     Dosage: 2000 MGS DAILY FOR 14 DAY ORAL
     Route: 048
     Dates: start: 20071129, end: 20080110
  2. OXALIPLATIN [Suspect]
     Indication: COLON CANCER METASTATIC
     Dosage: 100 MG/M2 EVERY 3 WEEKS IV
     Route: 042
     Dates: start: 20071129, end: 20080110
  3. RESTORIL [Concomitant]
  4. TOPROL-XL [Concomitant]
  5. COMPAZINE [Concomitant]
  6. HYDROCODONE BITARTRATE [Concomitant]

REACTIONS (5)
  - ASTHENIA [None]
  - DIARRHOEA [None]
  - FAECALOMA [None]
  - ORAL INTAKE REDUCED [None]
  - VOMITING [None]
